FAERS Safety Report 7553167 (Version 6)
Quarter: 2013Q1

REPORT INFORMATION
  Report Type: Report from Study
  Country: NZ (occurrence: NZ)
  Receive Date: 20100825
  Receipt Date: 20130329
  Transmission Date: 20140127
  Serious: Yes (Disabling)
  Sender: FDA-Public Use
  Company Number: NZ-NAPPMUNDI-USA-2010-0045753

PATIENT
  Age: 52 Year
  Sex: Male
  Weight: 114.4 kg

DRUGS (23)
  1. BTDS PATCH [Suspect]
     Indication: DIABETIC NEUROPATHY
     Dosage: 5 MCG/HR, UNK
     Route: 062
     Dates: start: 20100608, end: 20100615
  2. BTDS PATCH [Suspect]
     Dosage: 10 MCG/HR, WEEKLY
     Route: 062
     Dates: start: 20100615, end: 20100629
  3. BTDS PATCH [Suspect]
     Dosage: 20 MCG/HR, UNK
     Route: 062
     Dates: start: 20100629, end: 20100706
  4. BTDS PATCH [Suspect]
     Dosage: 30 MCG/HR, WEEKLY
     Route: 062
     Dates: start: 20100706, end: 20100713
  5. BTDS PATCH [Suspect]
     Dosage: 20 MCG/HR, WEEKLY
     Route: 062
     Dates: start: 20100713, end: 20100807
  6. BTDS PATCH [Suspect]
     Dosage: 20 MCG/HR, WEEKLY
     Route: 062
     Dates: start: 20100809, end: 20100817
  7. BTDS PATCH [Suspect]
     Dosage: 10 MCG/HR, WEEKLY
     Route: 062
     Dates: start: 20100817, end: 20100831
  8. ASPIRIN (E.C.) [Concomitant]
     Dosage: UNK
     Dates: start: 20100622
  9. METFORMIN [Concomitant]
     Dosage: UNK
     Dates: start: 20100611
  10. PROTAPHANE [Concomitant]
     Dosage: UNK
     Dates: start: 201001
  11. NOVORAPID [Concomitant]
     Dosage: UNK
     Dates: start: 201001
  12. OMEPRAZOLE [Concomitant]
     Dosage: UNK
     Dates: start: 20100622
  13. BEZAFIBRATE [Concomitant]
     Dosage: UNK
     Dates: start: 20100810
  14. FRUSEMIDE                          /00032601/ [Concomitant]
     Dosage: UNK
     Dates: start: 20100629
  15. AMITRIPTYLINE [Concomitant]
     Dosage: UNK
     Dates: start: 20100329
  16. AMITRIPTYLINE [Concomitant]
     Dosage: 20 MG, DAILY
     Dates: start: 20100831
  17. CILAZAPRIL [Concomitant]
     Dosage: UNK
     Dates: start: 20100601
  18. GLYCERYL TRINITRATE [Concomitant]
     Dosage: UNK
     Dates: start: 20100622
  19. CLOPIDOGREL [Concomitant]
     Dosage: UNK
     Dates: start: 20100809
  20. SIMVASTATIN [Concomitant]
     Dosage: UNK
     Dates: start: 20100709
  21. METOPROLOL [Concomitant]
     Indication: PRODUCT USED FOR UNKNOWN INDICATION
     Dosage: 23.75 MG, DAILY
     Dates: start: 20100709, end: 20100808
  22. METOPROLOL [Concomitant]
     Dosage: 47.5 MG, DAILY
     Dates: start: 20100809, end: 20100817
  23. DILTIAZEM CD [Concomitant]
     Dosage: 120 MG, DAILY
     Dates: start: 20100818

REACTIONS (3)
  - Suicidal ideation [Not Recovered/Not Resolved]
  - Depression [Not Recovered/Not Resolved]
  - Anxiety [Not Recovered/Not Resolved]
